FAERS Safety Report 4666079-7 (Version None)
Quarter: 2005Q2

REPORT INFORMATION
  Report Type: 
  Country: None (occurrence: None)
  Receive Date: 20050519
  Receipt Date: 20050513
  Transmission Date: 20051028
  Serious: Yes (Other)
  Sender: FDA-Public Use
  Company Number: US-JNJFOC-20050307425

PATIENT
  Sex: Female

DRUGS (3)
  1. VALTREX [Suspect]
     Indication: DRUG USE FOR UNKNOWN INDICATION
     Route: 048
  2. WELLBUTRIN [Suspect]
     Indication: DRUG USE FOR UNKNOWN INDICATION
     Route: 048
  3. TYLENOL COLD + FLU [Suspect]
     Indication: LARYNGITIS
     Route: 048
     Dates: start: 20050327, end: 20050327

REACTIONS (2)
  - DRUG INTERACTION [None]
  - THROAT TIGHTNESS [None]
